FAERS Safety Report 5171651-4 (Version None)
Quarter: 2006Q4

REPORT INFORMATION
  Report Type: 
  Country: None (occurrence: None)
  Receive Date: 20061213
  Receipt Date: 20061107
  Transmission Date: 20070319
  Serious: Yes (Other)
  Sender: FDA-Public Use
  Company Number: US-ROCHE-470587

PATIENT
  Age: 43 Year
  Sex: Female
  Weight: 58.1 kg

DRUGS (4)
  1. ACCUTANE [Suspect]
     Route: 048
     Dates: start: 19840615
  2. ACCUTANE [Suspect]
     Dosage: STRENGTH: 20 MG.
     Route: 048
     Dates: start: 20040209
  3. ACCUTANE [Suspect]
     Route: 048
     Dates: start: 20040615
  4. XANAX [Concomitant]
     Indication: ANXIETY
     Route: 048

REACTIONS (24)
  - BLOOD CHOLESTEROL INCREASED [None]
  - COMPUTERISED TOMOGRAM ABNORMAL [None]
  - DIVERTICULITIS [None]
  - GASTRIC HAEMORRHAGE [None]
  - GASTRIC PERFORATION [None]
  - GASTRIC ULCER [None]
  - GASTROINTESTINAL TRACT ADENOMA [None]
  - HAEMORRHOIDS [None]
  - HEART RATE IRREGULAR [None]
  - HERNIA [None]
  - HERPES SIMPLEX [None]
  - HYPERSENSITIVITY [None]
  - HYPOAESTHESIA [None]
  - INFLAMMATORY BOWEL DISEASE [None]
  - INJURY [None]
  - INSOMNIA [None]
  - INTERVERTEBRAL DISC PROTRUSION [None]
  - INTESTINAL HAEMORRHAGE [None]
  - IRRITABLE BOWEL SYNDROME [None]
  - LARGE INTESTINE PERFORATION [None]
  - MITRAL VALVE PROLAPSE [None]
  - NERVE INJURY [None]
  - PAIN [None]
  - VISION BLURRED [None]
